FAERS Safety Report 16491957 (Version 1)
Quarter: 2019Q2

REPORT INFORMATION
  Report Type: Report from Study
  Country: RO (occurrence: RO)
  Receive Date: 20190628
  Receipt Date: 20190628
  Transmission Date: 20190711
  Serious: Yes (Other)
  Sender: FDA-Public Use
  Company Number: RO-ACCORD-135079

PATIENT

DRUGS (1)
  1. OXALIPLATIN. [Suspect]
     Active Substance: OXALIPLATIN
     Indication: MALIGNANT PERITONEAL NEOPLASM
     Dosage: 460 MG/M2 IN 2 L/M2

REACTIONS (3)
  - Leukopenia [Unknown]
  - Acute hepatic failure [Unknown]
  - Neuropathy peripheral [Unknown]
